FAERS Safety Report 16802839 (Version 2)
Quarter: 2019Q4

REPORT INFORMATION
  Report Type: Report from Study
  Country: None (occurrence: US)
  Receive Date: 20190913
  Receipt Date: 20191231
  Transmission Date: 20200122
  Serious: Yes (Hospitalization)
  Sender: FDA-Public Use
  Company Number: US-ABBVIE-19K-163-2918622-00

PATIENT
  Sex: Male

DRUGS (16)
  1. ELIQUIS [Concomitant]
     Active Substance: APIXABAN
     Indication: PRODUCT USED FOR UNKNOWN INDICATION
  2. ALBUTEROL HFA [Concomitant]
     Active Substance: ALBUTEROL SULFATE
     Indication: PRODUCT USED FOR UNKNOWN INDICATION
  3. NITROSTAT [Concomitant]
     Active Substance: NITROGLYCERIN
     Indication: PRODUCT USED FOR UNKNOWN INDICATION
  4. GABAPENTINE [Concomitant]
     Active Substance: GABAPENTIN
     Indication: PRODUCT USED FOR UNKNOWN INDICATION
  5. VITAMIN D3 [Concomitant]
     Active Substance: CHOLECALCIFEROL
     Indication: PRODUCT USED FOR UNKNOWN INDICATION
     Dosage: 1000 UI
  6. HUMIRA [Suspect]
     Active Substance: ADALIMUMAB
     Indication: PSORIASIS
     Route: 058
  7. TRAMADOL. [Concomitant]
     Active Substance: TRAMADOL
     Indication: PRODUCT USED FOR UNKNOWN INDICATION
  8. ATORVASTATIN CALCIUM. [Concomitant]
     Active Substance: ATORVASTATIN CALCIUM
     Indication: PRODUCT USED FOR UNKNOWN INDICATION
  9. DEPAKOTE [Concomitant]
     Active Substance: DIVALPROEX SODIUM
     Indication: PRODUCT USED FOR UNKNOWN INDICATION
  10. INGREZZA [Concomitant]
     Active Substance: VALBENAZINE
     Indication: PRODUCT USED FOR UNKNOWN INDICATION
  11. DEPAKOTE [Suspect]
     Active Substance: DIVALPROEX SODIUM
     Indication: PRODUCT USED FOR UNKNOWN INDICATION
     Route: 065
  12. ASPIRIN. [Concomitant]
     Active Substance: ASPIRIN
     Indication: PRODUCT USED FOR UNKNOWN INDICATION
  13. HYDROXYZINE [Concomitant]
     Active Substance: HYDROXYZINE HYDROCHLORIDE
     Indication: PRODUCT USED FOR UNKNOWN INDICATION
  14. METFORMIN ER [Concomitant]
     Active Substance: METFORMIN HYDROCHLORIDE
     Indication: PRODUCT USED FOR UNKNOWN INDICATION
  15. METOPROLOL. [Concomitant]
     Active Substance: METOPROLOL
     Indication: PRODUCT USED FOR UNKNOWN INDICATION
  16. IMODIUM [Concomitant]
     Active Substance: LOPERAMIDE HYDROCHLORIDE
     Indication: PRODUCT USED FOR UNKNOWN INDICATION

REACTIONS (10)
  - Vomiting [Not Recovered/Not Resolved]
  - Paronychia [Recovered/Resolved]
  - Infection susceptibility increased [Unknown]
  - Fatigue [Not Recovered/Not Resolved]
  - Palpitations [Not Recovered/Not Resolved]
  - Hypomania [Not Recovered/Not Resolved]
  - Dyspnoea [Not Recovered/Not Resolved]
  - Blood sodium decreased [Not Recovered/Not Resolved]
  - Device issue [Not Recovered/Not Resolved]
  - Rash [Not Recovered/Not Resolved]

NARRATIVE: CASE EVENT DATE: 2019
